FAERS Safety Report 19030726 (Version 1)
Quarter: 2021Q1

REPORT INFORMATION
  Report Type: Spontaneous
  Country: US (occurrence: US)
  Receive Date: 20210319
  Receipt Date: 20210319
  Transmission Date: 20210420
  Serious: No
  Sender: FDA-Public Use
  Company Number: US-ASTRAZENECA-2021A083775

PATIENT
  Age: 25865 Day
  Sex: Male
  Weight: 101.6 kg

DRUGS (6)
  1. LISINPORIL [Concomitant]
  2. BYDUREON BCISE [Suspect]
     Active Substance: EXENATIDE
     Indication: DIABETES MELLITUS
     Dosage: EVERY SATURDAY IN THE AFTERNOON
     Route: 058
  3. GLIPIZIDE. [Concomitant]
     Active Substance: GLIPIZIDE
  4. PIOGLITAZONE. [Concomitant]
     Active Substance: PIOGLITAZONE
  5. TRULICITY [Concomitant]
     Active Substance: DULAGLUTIDE
  6. ATORVASTATIN [Concomitant]
     Active Substance: ATORVASTATIN

REACTIONS (5)
  - Tenderness [Unknown]
  - Hot flush [Unknown]
  - Feeling cold [Unknown]
  - Device issue [Unknown]
  - Musculoskeletal chest pain [Unknown]
